FAERS Safety Report 11077165 (Version 2)
Quarter: 2015Q2

REPORT INFORMATION
  Report Type: Spontaneous
  Country: US (occurrence: US)
  Receive Date: 20150429
  Receipt Date: 20150525
  Transmission Date: 20150821
  Serious: No
  Sender: FDA-Public Use
  Company Number: US-JNJFOC-20130702858

PATIENT
  Age: 79 Year
  Sex: Female
  Weight: 49.9 kg

DRUGS (2)
  1. IMODIUM MULTI-SYMPTOM RELIEF [Suspect]
     Active Substance: DIMETHICONE\LOPERAMIDE HYDROCHLORIDE
     Route: 048
  2. IMODIUM MULTI-SYMPTOM RELIEF [Suspect]
     Active Substance: DIMETHICONE\LOPERAMIDE HYDROCHLORIDE
     Indication: DIARRHOEA
     Dosage: 1 CAPLET, AS NEEDED
     Route: 048
     Dates: start: 20130702, end: 20130702

REACTIONS (2)
  - Oesophagitis [Recovering/Resolving]
  - Foreign body [Recovering/Resolving]

NARRATIVE: CASE EVENT DATE: 20130702
